FAERS Safety Report 15719369 (Version 3)
Quarter: 2019Q2

REPORT INFORMATION
  Report Type: Spontaneous
  Country: PL (occurrence: PL)
  Receive Date: 20181213
  Receipt Date: 20190405
  Transmission Date: 20190711
  Serious: Yes (Death, Hospitalization)
  Sender: FDA-Public Use
  Company Number: PHHY2018PL184392

PATIENT
  Sex: Male

DRUGS (11)
  1. CAMPATH [Suspect]
     Active Substance: ALEMTUZUMAB
     Indication: GRAFT VERSUS HOST DISEASE
  2. VORICONAZOLE. [Suspect]
     Active Substance: VORICONAZOLE
     Indication: PARONYCHIA
     Dosage: STARTED ON DAY 8
     Route: 042
  3. BUSILVEX [Suspect]
     Active Substance: BUSULFAN
     Indication: TRANSPLANT
     Dosage: 1.0 MG/KG
     Route: 042
  4. FLUDARABINE [Suspect]
     Active Substance: FLUDARABINE PHOSPHATE
     Indication: TRANSPLANT
     Dosage: 40 MG/M2, QID
     Route: 042
  5. BUSILVEX [Suspect]
     Active Substance: BUSULFAN
     Indication: STEM CELL TRANSPLANT
  6. VFEND [Suspect]
     Active Substance: VORICONAZOLE
     Indication: ANTIFUNGAL PROPHYLAXIS
     Dosage: 6 MG/KG, BID
     Route: 048
  7. CAMPATH [Suspect]
     Active Substance: ALEMTUZUMAB
     Indication: PROPHYLAXIS AGAINST GRAFT VERSUS HOST DISEASE
     Dosage: 0.2 MG/KG, TID
     Route: 065
  8. AMBISOME [Concomitant]
     Active Substance: AMPHOTERICIN B
     Indication: PRODUCT USED FOR UNKNOWN INDICATION
     Dosage: 3 MG/KG, QD
     Route: 042
  9. VFEND [Suspect]
     Active Substance: VORICONAZOLE
     Dosage: 3 MG/KG, BID
     Route: 048
  10. SOLU-MEDROL [Suspect]
     Active Substance: METHYLPREDNISOLONE SODIUM SUCCINATE
     Indication: CHRONIC GRANULOMATOUS DISEASE
     Dosage: UNK
     Route: 065
  11. FUNGIZONE [Concomitant]
     Active Substance: AMPHOTERICIN B
     Indication: PRODUCT USED FOR UNKNOWN INDICATION
     Dosage: 12 MG/KG, UNK
     Route: 048

REACTIONS (13)
  - Hypertensive crisis [Fatal]
  - Paronychia [Fatal]
  - Hemiplegia [Fatal]
  - Drug ineffective [Fatal]
  - Neurological decompensation [Fatal]
  - Altered state of consciousness [Fatal]
  - Hypertension [Fatal]
  - Epilepsy [Fatal]
  - Hydrocephalus [Fatal]
  - Mucosal inflammation [Fatal]
  - Cerebral aspergillosis [Fatal]
  - Cerebral disorder [Fatal]
  - Loss of consciousness [Fatal]

NARRATIVE: CASE EVENT DATE: 20110705
